FAERS Safety Report 12435708 (Version 1)
Quarter: 2016Q2

REPORT INFORMATION
  Report Type: Spontaneous
  Country: US (occurrence: US)
  Receive Date: 20160603
  Receipt Date: 20160603
  Transmission Date: 20160815
  Serious: No
  Sender: FDA-Public Use
  Company Number: US-ROCHE-1612530

PATIENT
  Sex: Male
  Weight: 69.92 kg

DRUGS (2)
  1. XELODA [Suspect]
     Active Substance: CAPECITABINE
     Indication: COLON CANCER
     Dosage: 3QD AM AND 3QD AM
     Route: 048
     Dates: start: 20150611
  2. XELODA [Suspect]
     Active Substance: CAPECITABINE
     Dosage: 3QD AM AND 3QD AM
     Route: 048
     Dates: start: 20150611

REACTIONS (1)
  - Nausea [Unknown]
